FAERS Safety Report 6403231-4 (Version None)
Quarter: 2009Q4

REPORT INFORMATION
  Report Type: 
  Country: None (occurrence: None)
  Receive Date: 20091016
  Receipt Date: 20091006
  Transmission Date: 20100525
  Serious: Yes (Hospitalization)
  Sender: FDA-Public Use
  Company Number: US-NOVOPROD-292511

PATIENT
  Sex: Male

DRUGS (1)
  1. NOVOLOG [Suspect]
     Indication: DIABETES MELLITUS
     Dosage: UNKNOWN
     Route: 058
     Dates: start: 20090901

REACTIONS (7)
  - BLOOD GLUCOSE DECREASED [None]
  - BLOOD GLUCOSE INCREASED [None]
  - DIALYSIS [None]
  - HYPERHIDROSIS [None]
  - MALAISE [None]
  - OVERDOSE [None]
  - STAPHYLOCOCCAL INFECTION [None]
